FAERS Safety Report 5513525-2 (Version None)
Quarter: 2007Q4

REPORT INFORMATION
  Report Type: 
  Country: None (occurrence: None)
  Receive Date: 20071112
  Receipt Date: 20071102
  Transmission Date: 20080405
  Serious: Yes (Hospitalization)
  Sender: FDA-Public Use
  Company Number: JP-ABBOTT-07P-087-0423219-00

PATIENT
  Age: 23 Year
  Sex: Female
  Weight: 69.5 kg

DRUGS (3)
  1. CLARITHROMYCIN [Suspect]
     Indication: PYREXIA
     Route: 048
     Dates: start: 20070901, end: 20070904
  2. LOXOPROFEN [Suspect]
     Indication: DRUG USE FOR UNKNOWN INDICATION
     Route: 048
     Dates: start: 20070831, end: 20070905
  3. SERRAPEPTASE [Suspect]
     Indication: DRUG USE FOR UNKNOWN INDICATION
     Route: 048
     Dates: start: 20070831, end: 20070904

REACTIONS (5)
  - DIARRHOEA [None]
  - LEUKOCYTOCLASTIC VASCULITIS [None]
  - PYREXIA [None]
  - RASH [None]
  - RASH GENERALISED [None]
